FAERS Safety Report 6034938-9 (Version None)
Quarter: 2009Q1

REPORT INFORMATION
  Report Type: 
  Country: None (occurrence: None)
  Receive Date: 20090108
  Receipt Date: 20090108
  Transmission Date: 20090719
  Serious: Yes (Other)
  Sender: FDA-Public Use
  Company Number: None

PATIENT
  Age: 36 Year
  Sex: Female
  Weight: 83.9154 kg

DRUGS (2)
  1. OXYCODONE HCL AND ACETAMINOPHEN [Suspect]
     Indication: BUNION OPERATION
     Dosage: 2 TABLETS EVERY 3 HOURS PO
     Route: 048
     Dates: start: 20090102, end: 20090103
  2. OXYCODONE HCL AND ACETAMINOPHEN [Suspect]
     Indication: POSTOPERATIVE ANALGESIA
     Dosage: 2 TABLETS EVERY 3 HOURS PO
     Route: 048
     Dates: start: 20090102, end: 20090103

REACTIONS (2)
  - DRUG INEFFECTIVE [None]
  - PRODUCT QUALITY ISSUE [None]
